FAERS Safety Report 5582907-5 (Version None)
Quarter: 2008Q1

REPORT INFORMATION
  Report Type: 
  Country: None (occurrence: None)
  Receive Date: 20080107
  Receipt Date: 20080102
  Transmission Date: 20080703
  Serious: Yes (Hospitalization)
  Sender: FDA-Public Use
  Company Number: DE-AVENTIS-200810008DE

PATIENT
  Sex: Female
  Weight: 45 kg

DRUGS (2)
  1. LANTUS [Suspect]
     Route: 058
     Dates: start: 20070101
  2. INSULIN SEMILENTE [Concomitant]
     Dosage: DOSE: NOT REPORTED
     Route: 058

REACTIONS (4)
  - DIARRHOEA [None]
  - HEART RATE INCREASED [None]
  - PANCREATIC INSUFFICIENCY [None]
  - WEIGHT DECREASED [None]
